FAERS Safety Report 4748048-1 (Version None)
Quarter: 2005Q3

REPORT INFORMATION
  Report Type: 
  Country: None (occurrence: None)
  Receive Date: 20050818
  Receipt Date: 20050624
  Transmission Date: 20060218
  Serious: Yes (Hospitalization, Other)
  Sender: FDA-Public Use
  Company Number: BE-BRISTOL-MYERS SQUIBB COMPANY-13014741

PATIENT
  Age: 46 Year
  Sex: Female
  Weight: 100 kg

DRUGS (3)
  1. CARBOPLATIN [Suspect]
     Indication: OVARIAN CANCER
     Route: 042
     Dates: start: 20050510, end: 20050513
  2. ETOPOSIDE [Suspect]
     Indication: OVARIAN CANCER
     Dates: start: 20050510
  3. BLEOMYCIN [Suspect]
     Indication: OVARIAN CANCER
     Dates: start: 20050510

REACTIONS (2)
  - ANGIONEUROTIC OEDEMA [None]
  - TRANSFUSION REACTION [None]
